FAERS Safety Report 21961801 (Version 1)
Quarter: 2023Q1

REPORT INFORMATION
  Report Type: Spontaneous
  Country: US (occurrence: None)
  Receive Date: 20230204
  Receipt Date: 20230204
  Transmission Date: 20230418
  Serious: No
  Sender: FDA-Public Use
  Company Number: None

PATIENT
  Age: 59 Year
  Sex: Female
  Weight: 68.85 kg

DRUGS (16)
  1. OZEMPIC [Suspect]
     Active Substance: SEMAGLUTIDE
     Indication: Weight decreased
     Dosage: OTHER QUANTITY : 1 INJECTION(S);?OTHER FREQUENCY : ONCE PER WEEK;?
     Route: 030
     Dates: start: 20230128
  2. METOPROLOL [Concomitant]
  3. OLMESARTAN [Concomitant]
     Active Substance: OLMESARTAN
  4. AMLODIPINE [Concomitant]
     Active Substance: AMLODIPINE BESYLATE
  5. SYNTHROID [Concomitant]
     Active Substance: LEVOTHYROXINE SODIUM
  6. PANTOPRAZOLE [Concomitant]
     Active Substance: PANTOPRAZOLE
  7. ALLOPURINOL [Concomitant]
     Active Substance: ALLOPURINOL
  8. SEMAGLUTIDE [Concomitant]
     Active Substance: SEMAGLUTIDE
  9. SOLIFENACIN [Concomitant]
     Active Substance: SOLIFENACIN
  10. FAMOTIDINE [Concomitant]
     Active Substance: FAMOTIDINE
  11. DESVENLAFAXINE [Concomitant]
     Active Substance: DESVENLAFAXINE
  12. ROSUVASTATIN [Concomitant]
     Active Substance: ROSUVASTATIN
  13. CONCERTA [Concomitant]
     Active Substance: METHYLPHENIDATE HYDROCHLORIDE
  14. VITAMIN D [Concomitant]
     Active Substance: VITAMIN D NOS
  15. MAGNESIUM [Concomitant]
     Active Substance: MAGNESIUM
  16. VITAMIN B12 [Concomitant]
     Active Substance: CYANOCOBALAMIN

REACTIONS (1)
  - Insomnia [None]

NARRATIVE: CASE EVENT DATE: 20230129
